FAERS Safety Report 20074908 (Version 1)
Quarter: 2021Q4

REPORT INFORMATION
  Report Type: Spontaneous
  Country: US (occurrence: None)
  Receive Date: 20211116
  Receipt Date: 20211116
  Transmission Date: 20220303
  Serious: Yes (Life-Threatening, Other)
  Sender: FDA-Public Use
  Company Number: None

PATIENT
  Age: 42 Year
  Sex: Female
  Weight: 74.7 kg

DRUGS (10)
  1. REGEN-COV [Suspect]
     Active Substance: CASIRIVIMAB\IMDEVIMAB
     Indication: COVID-19
     Route: 042
     Dates: start: 20211115, end: 20211115
  2. ATENOLOL [Concomitant]
     Active Substance: ATENOLOL
  3. SUNOSI [Concomitant]
     Active Substance: SOLRIAMFETOL
  4. ALLEGRA [Concomitant]
     Active Substance: FEXOFENADINE HYDROCHLORIDE
  5. TOPIRAMATE [Concomitant]
     Active Substance: TOPIRAMATE
  6. Liothyrinine [Concomitant]
  7. Venom allergy injections [Concomitant]
  8. VITAMIN D [Concomitant]
     Active Substance: VITAMIN D NOS
  9. VITAMIN B12 [Concomitant]
     Active Substance: CYANOCOBALAMIN
  10. VITAMINS [Concomitant]
     Active Substance: VITAMINS

REACTIONS (14)
  - Tachycardia [None]
  - Blood pressure increased [None]
  - Dyspnoea [None]
  - Throat tightness [None]
  - Flushing [None]
  - Rash [None]
  - Nausea [None]
  - Back pain [None]
  - Pruritus [None]
  - Hypoaesthesia [None]
  - Paraesthesia [None]
  - Peripheral swelling [None]
  - Chest discomfort [None]
  - Dyspnoea [None]

NARRATIVE: CASE EVENT DATE: 20211115
